FAERS Safety Report 19643682 (Version 18)
Quarter: 2024Q1

REPORT INFORMATION
  Report Type: Report from Study
  Country: US (occurrence: US)
  Receive Date: 20210731
  Receipt Date: 20240227
  Transmission Date: 20240409
  Serious: No
  Sender: FDA-Public Use
  Company Number: NVSC2021US165585

PATIENT
  Age: 48 Year
  Sex: Female

DRUGS (2)
  1. COSENTYX [Suspect]
     Active Substance: SECUKINUMAB
     Indication: Psoriasis
     Dosage: 300 MG, QMO
     Route: 058
     Dates: start: 20210610
  2. COSENTYX [Suspect]
     Active Substance: SECUKINUMAB
     Dosage: 300 MG, QMO
     Route: 058
     Dates: start: 20230516

REACTIONS (18)
  - Dry skin [Unknown]
  - Pigmentation disorder [Unknown]
  - Macule [Unknown]
  - Memory impairment [Unknown]
  - Hypoaesthesia [Unknown]
  - Hyperkeratosis [Unknown]
  - Joint injury [Not Recovered/Not Resolved]
  - Skin irritation [Unknown]
  - Psoriasis [Not Recovered/Not Resolved]
  - Pruritus [Unknown]
  - Injection site bruising [Not Recovered/Not Resolved]
  - Rosacea [Not Recovered/Not Resolved]
  - Blister [Not Recovered/Not Resolved]
  - Malaise [Unknown]
  - Brain fog [Unknown]
  - Stress [Not Recovered/Not Resolved]
  - Patella fracture [Not Recovered/Not Resolved]
  - Injection site haemorrhage [Not Recovered/Not Resolved]

NARRATIVE: CASE EVENT DATE: 20220617
